FAERS Safety Report 9683601 (Version 1)
Quarter: 2013Q4

REPORT INFORMATION
  Report Type: Spontaneous
  Country: US (occurrence: None)
  Receive Date: 20131111
  Receipt Date: 20131111
  Transmission Date: 20140711
  Serious: Yes (Hospitalization)
  Sender: FDA-Public Use
  Company Number: None

PATIENT
  Age: 60 Year
  Sex: Male
  Weight: 89.5 kg

DRUGS (2)
  1. TRAZODONE [Suspect]
     Indication: INSOMNIA
     Route: 048
     Dates: start: 20121004, end: 20131008
  2. TESTOSTERONE [Suspect]
     Indication: HYPOGONADISM
     Route: 030
     Dates: start: 20130820, end: 20131018

REACTIONS (1)
  - Priapism [None]
